FAERS Safety Report 9812756 (Version 3)
Quarter: 2014Q2

REPORT INFORMATION
  Report Type: Spontaneous
  Country: US (occurrence: None)
  Receive Date: 20140108
  Receipt Date: 20140515
  Transmission Date: 20141212
  Serious: Yes (Other)
  Sender: FDA-Public Use
  Company Number: ADR-2014-00027

PATIENT
  Age: 46 Year
  Sex: Female

DRUGS (6)
  1. LIORESAL [Suspect]
     Indication: MUSCLE SPASTICITY
     Dosage: SEE B5
     Dates: start: 20131205
  2. VENLAFAXINE [Concomitant]
  3. CELEXA [Concomitant]
  4. ZOFRAN [Concomitant]
  5. SIMVASTATIN [Concomitant]
  6. INHALER [Concomitant]

REACTIONS (7)
  - Dysuria [None]
  - Malaise [None]
  - Hypophagia [None]
  - Nausea [None]
  - Headache [None]
  - Neck pain [None]
  - Concussion [None]
